FAERS Safety Report 9819107 (Version 1)
Quarter: 2014Q1

REPORT INFORMATION
  Report Type: Spontaneous
  Country: US (occurrence: US)
  Receive Date: 20140115
  Receipt Date: 20140115
  Transmission Date: 20141002
  Serious: No
  Sender: FDA-Public Use
  Company Number: US-ENDO PHARMACEUTICALS INC.-PERC20130022

PATIENT
  Sex: Female
  Weight: 45.4 kg

DRUGS (2)
  1. PERCOCET 5MG/325MG [Suspect]
     Indication: MYELITIS TRANSVERSE
     Dosage: 10MG/650MG
     Route: 048
  2. GAS X [Concomitant]
     Indication: PRODUCT USED FOR UNKNOWN INDICATION
     Dosage: UNKNOWN
     Route: 065

REACTIONS (1)
  - Constipation [Unknown]
